FAERS Safety Report 13069367 (Version 1)
Quarter: 2016Q4

REPORT INFORMATION
  Report Type: Spontaneous
  Country: US (occurrence: US)
  Receive Date: 20161228
  Receipt Date: 20161228
  Transmission Date: 20170207
  Serious: No
  Sender: FDA-Public Use
  Company Number: US-SHIRE-US201618725

PATIENT
  Sex: Female
  Weight: 128 kg

DRUGS (3)
  1. REFRESH LIQUIGEL [Concomitant]
     Active Substance: CARBOXYMETHYLCELLULOSE SODIUM
     Indication: PRODUCT USED FOR UNKNOWN INDICATION
     Dosage: UNK, UNKNOWN
     Route: 065
  2. XIIDRA [Suspect]
     Active Substance: LIFITEGRAST
     Indication: DRY EYE
     Dosage: 1 GTT, 2X/DAY:BID
     Route: 047
     Dates: start: 20161007
  3. BLOOD PLASMA [Concomitant]
     Indication: DRY EYE
     Dosage: UNK, OTHER (INTERMITTENTLY, IN BETWEEN XIIDRA DOSES)
     Route: 047

REACTIONS (4)
  - Eye irritation [Recovered/Resolved]
  - Wrong technique in product usage process [Recovered/Resolved]
  - Drug effect decreased [Recovered/Resolved]
  - Overdose [Recovered/Resolved]
